FAERS Safety Report 17451254 (Version 2)
Quarter: 2020Q2

REPORT INFORMATION
  Report Type: Spontaneous
  Country: US (occurrence: US)
  Receive Date: 20200224
  Receipt Date: 20200511
  Transmission Date: 20200713
  Serious: Yes (Other)
  Sender: FDA-Public Use
  Company Number: US-SA-2020SA046269

PATIENT
  Age: 58 Year
  Sex: Female
  Weight: 92.53 kg

DRUGS (23)
  1. LORAZEPAM. [Concomitant]
     Active Substance: LORAZEPAM
  2. MELATONIN [Concomitant]
     Active Substance: MELATONIN
  3. NOVOLOG [Concomitant]
     Active Substance: INSULIN ASPART
  4. LANCETAN [Concomitant]
  5. SIMVASTATIN. [Concomitant]
     Active Substance: SIMVASTATIN
  6. TAMOXIFEN [Concomitant]
     Active Substance: TAMOXIFEN
  7. LEVOTHYROXINE. [Concomitant]
     Active Substance: LEVOTHYROXINE
  8. TAXOTERE [Suspect]
     Active Substance: DOCETAXEL
     Indication: BREAST CANCER FEMALE
     Dosage: 142 MG, Q3W
     Route: 042
     Dates: start: 20091001, end: 20091001
  9. METRONIDAZOLE. [Concomitant]
     Active Substance: METRONIDAZOLE
  10. SULFAMETHOXAZOLE [Concomitant]
     Active Substance: SULFAMETHOXAZOLE
  11. TAXOTERE [Suspect]
     Active Substance: DOCETAXEL
     Dosage: 142 MG, Q3W
     Route: 042
     Dates: start: 20091203, end: 20091203
  12. LEVEMIR [Concomitant]
     Active Substance: INSULIN DETEMIR
  13. DIOVAN [Concomitant]
     Active Substance: VALSARTAN
  14. HUMALOG [Concomitant]
     Active Substance: INSULIN LISPRO
  15. PROVENTIL HFA [SALBUTAMOL] [Concomitant]
  16. SYMBICORT [Concomitant]
     Active Substance: BUDESONIDE\FORMOTEROL FUMARATE DIHYDRATE
  17. NEOSAR [Concomitant]
     Active Substance: CYCLOPHOSPHAMIDE
     Indication: BREAST CANCER FEMALE
  18. HYDROCODONE [Concomitant]
     Active Substance: HYDROCODONE
  19. NASONEX [Concomitant]
     Active Substance: MOMETASONE FUROATE
  20. OMEPRAZOLE. [Concomitant]
     Active Substance: OMEPRAZOLE
  21. VENTOLIN HFA [Concomitant]
     Active Substance: ALBUTEROL SULFATE
  22. BACTROBAN [Concomitant]
     Active Substance: MUPIROCIN\MUPIROCIN CALCIUM
  23. MUPIROCIN. [Concomitant]
     Active Substance: MUPIROCIN

REACTIONS (5)
  - Anxiety [Unknown]
  - Alopecia [Recovering/Resolving]
  - Emotional distress [Unknown]
  - Pain [Unknown]
  - Impaired quality of life [Unknown]

NARRATIVE: CASE EVENT DATE: 20091224
